FAERS Safety Report 9360951 (Version 1)
Quarter: 2013Q2

REPORT INFORMATION
  Report Type: Spontaneous
  Country: US (occurrence: None)
  Receive Date: 20130618
  Receipt Date: 20130618
  Transmission Date: 20140414
  Serious: Yes (Life-Threatening, Hospitalization)
  Sender: FDA-Public Use
  Company Number: 2013P1007836

PATIENT
  Age: 17 Year
  Sex: Female

DRUGS (1)
  1. LAMOTRIGINE TABLETS 25MG [Suspect]
     Dates: start: 201302

REACTIONS (2)
  - Hallucination [None]
  - Abnormal behaviour [None]
